FAERS Safety Report 7801482-5 (Version None)
Quarter: 2011Q4

REPORT INFORMATION
  Report Type: 
  Country: None (occurrence: None)
  Receive Date: 20111006
  Receipt Date: 20111006
  Transmission Date: 20120403
  Serious: Yes (Life-Threatening, Hospitalization)
  Sender: FDA-Public Use
  Company Number: None

PATIENT
  Age: 74 Year
  Sex: Female
  Weight: 66.6 kg

DRUGS (1)
  1. ACETAZOLAMIDE [Suspect]
     Indication: ALKALOSIS
     Dosage: 500 MG ONCE PO
     Route: 048
     Dates: start: 20110803, end: 20110803

REACTIONS (9)
  - PALLOR [None]
  - HYPOTHERMIA [None]
  - RESPIRATORY DEPRESSION [None]
  - BLOOD PRESSURE IMMEASURABLE [None]
  - RESPIRATORY DISTRESS [None]
  - FATIGUE [None]
  - EPIGASTRIC DISCOMFORT [None]
  - BLOOD PRESSURE SYSTOLIC INCREASED [None]
  - CYANOSIS [None]
